FAERS Safety Report 9735884 (Version 2)
Quarter: 2015Q3

REPORT INFORMATION
  Report Type: Spontaneous
  Country: US (occurrence: US)
  Receive Date: 20131206
  Receipt Date: 20150804
  Transmission Date: 20151125
  Serious: No
  Sender: FDA-Public Use
  Company Number: US-GILEAD-2009-0024264

PATIENT
  Age: 65 Year
  Sex: Female
  Weight: 131.54 kg

DRUGS (13)
  1. ALBUTEROL. [Concomitant]
     Active Substance: ALBUTEROL
  2. POTASSIUM [Concomitant]
     Active Substance: POTASSIUM
  3. LEXAPRO [Concomitant]
     Active Substance: ESCITALOPRAM OXALATE
  4. REVATIO [Concomitant]
     Active Substance: SILDENAFIL CITRATE
  5. COUMADIN [Concomitant]
     Active Substance: WARFARIN SODIUM
  6. OXYGEN. [Concomitant]
     Active Substance: OXYGEN
  7. SPIRONOLACTONE. [Concomitant]
     Active Substance: SPIRONOLACTONE
  8. PRILOSEC [Concomitant]
     Active Substance: OMEPRAZOLE MAGNESIUM
  9. TORSEMIDE. [Concomitant]
     Active Substance: TORSEMIDE
  10. ZETIA [Concomitant]
     Active Substance: EZETIMIBE
  11. ASMANEX [Concomitant]
     Active Substance: MOMETASONE FUROATE
  12. LETAIRIS [Suspect]
     Active Substance: AMBRISENTAN
     Indication: PULMONARY ARTERIAL HYPERTENSION
     Route: 048
     Dates: start: 20081009
  13. LORAZEPAM. [Concomitant]
     Active Substance: LORAZEPAM

REACTIONS (6)
  - Oedema peripheral [Unknown]
  - Palpitations [Unknown]
  - Constipation [Unknown]
  - Headache [Unknown]
  - Diarrhoea [Unknown]
  - Hot flush [Unknown]
